FAERS Safety Report 7972911 (Version 2)
Quarter: 2014Q1

REPORT INFORMATION
  Report Type: Spontaneous
  Country: CA (occurrence: CA)
  Receive Date: 20110603
  Receipt Date: 20140311
  Transmission Date: 20141002
  Serious: Yes (Life-Threatening, Other)
  Sender: FDA-Public Use
  Company Number: CA-JNJFOC-20110512253

PATIENT
  Age: 16 Year
  Sex: Female
  Weight: 41 kg

DRUGS (17)
  1. RISPERIDONE [Suspect]
     Indication: PSYCHOTIC DISORDER
     Route: 065
  2. RISPERIDONE [Suspect]
     Indication: PSYCHOTIC DISORDER
     Route: 065
  3. RISPERIDONE [Suspect]
     Indication: PSYCHOTIC DISORDER
     Route: 065
  4. RISPERIDONE [Suspect]
     Indication: SOCIAL PHOBIA
     Route: 065
  5. RISPERIDONE [Suspect]
     Indication: SOCIAL PHOBIA
     Route: 065
  6. RISPERIDONE [Suspect]
     Indication: SOCIAL PHOBIA
     Route: 065
  7. RISPERIDONE [Suspect]
     Indication: OBSESSIVE-COMPULSIVE DISORDER
     Route: 065
  8. RISPERIDONE [Suspect]
     Indication: OBSESSIVE-COMPULSIVE DISORDER
     Route: 065
  9. RISPERIDONE [Suspect]
     Indication: OBSESSIVE-COMPULSIVE DISORDER
     Route: 065
  10. CITALOPRAM [Suspect]
     Indication: PSYCHOTIC DISORDER
     Route: 065
  11. CITALOPRAM [Suspect]
     Indication: PSYCHOTIC DISORDER
     Route: 065
  12. CITALOPRAM [Suspect]
     Indication: SOCIAL PHOBIA
     Route: 065
  13. CITALOPRAM [Suspect]
     Indication: SOCIAL PHOBIA
     Route: 065
  14. CITALOPRAM [Suspect]
     Indication: OBSESSIVE-COMPULSIVE DISORDER
     Route: 065
  15. CITALOPRAM [Suspect]
     Indication: OBSESSIVE-COMPULSIVE DISORDER
     Route: 065
  16. CLONAZEPAM [Concomitant]
     Indication: CONVERSION DISORDER
     Route: 065
  17. OLANZAPINE [Concomitant]
     Indication: CONVERSION DISORDER
     Route: 065

REACTIONS (14)
  - Suicide attempt [Unknown]
  - Suicidal ideation [Recovered/Resolved]
  - Dystonia [Recovering/Resolving]
  - Hallucination, auditory [Unknown]
  - Dyskinesia [Unknown]
  - Contusion [Unknown]
  - Anxiety [Unknown]
  - Weight decreased [Unknown]
  - Drug dose omission [Unknown]
  - Inappropriate schedule of drug administration [Unknown]
  - Cachexia [Unknown]
  - Conversion disorder [Unknown]
  - Gait disturbance [Unknown]
  - Activities of daily living impaired [Unknown]
